FAERS Safety Report 4545343-6 (Version None)
Quarter: 2005Q1

REPORT INFORMATION
  Report Type: 
  Country: None (occurrence: None)
  Receive Date: 20050103
  Receipt Date: 20041124
  Transmission Date: 20050727
  Serious: Yes (Life-Threatening)
  Sender: FDA-Public Use
  Company Number: 805#1#2004-00034

PATIENT
  Age: 78 Year
  Sex: Female

DRUGS (7)
  1. PROSTANDIN-I.V. (ALPROSTADIL (PAOD)) [Suspect]
     Indication: LUMBAR SPINAL STENOSIS
     Dosage: 60 MCG
     Route: 041
     Dates: start: 20041026, end: 20041112
  2. SODIUM BICARBONATE IN PLASTIC CONTAINER [Suspect]
     Dosage: 20 ML (20ML 1 IN 1 DAY(S))
     Route: 041
     Dates: start: 20041026, end: 20041112
  3. DISTILLED WATER (WATER) [Suspect]
     Dosage: 100 ML (100ML 1 IN 1 DAY(S))
     Route: 041
     Dates: start: 20041026, end: 20041112
  4. LIMAPROST-ALFADEX (LIMAPROST) [Concomitant]
  5. MECOBALAMIN (MECOBALAMIN) [Concomitant]
  6. REBAMIPIDE (REBAMIPIDE) [Concomitant]
  7. EXTRACT FROM INFLAMMATORY RABBIT SKIN INOCULATED BY VACCINA VIRUS (ORG [Concomitant]

REACTIONS (8)
  - ANAPHYLACTIC SHOCK [None]
  - CARDIOMEGALY [None]
  - FEELING ABNORMAL [None]
  - FEELING COLD [None]
  - LACUNAR INFARCTION [None]
  - LOSS OF CONSCIOUSNESS [None]
  - RESPIRATORY ARREST [None]
  - SUBDURAL EFFUSION [None]
